FAERS Safety Report 4771659-4 (Version None)
Quarter: 2005Q3

REPORT INFORMATION
  Report Type: 
  Country: None (occurrence: None)
  Receive Date: 20050914
  Receipt Date: 20050905
  Transmission Date: 20060218
  Serious: Yes (Other)
  Sender: FDA-Public Use
  Company Number: B0392774A

PATIENT
  Age: 33 Year
  Sex: Male

DRUGS (4)
  1. EPIVIR [Suspect]
     Indication: ACQUIRED IMMUNODEFICIENCY SYNDROME
     Dosage: 150 MG TWICE PER DAY
     Dates: start: 19980115
  2. STAVUDINE [Suspect]
     Indication: ACQUIRED IMMUNODEFICIENCY SYNDROME
     Dosage: 40 MG TWICE PER DAY
     Dates: start: 19980115
  3. NEVIRAPINE [Suspect]
     Indication: ACQUIRED IMMUNODEFICIENCY SYNDROME
     Dosage: 20 MG TWICE PER DAY
     Dates: start: 19980115
  4. FLUCONAZOLE [Concomitant]

REACTIONS (1)
  - INTRACRANIAL PRESSURE INCREASED [None]
